FAERS Safety Report 5146039-2 (Version None)
Quarter: 2006Q4

REPORT INFORMATION
  Report Type: 
  Country: None (occurrence: None)
  Receive Date: 20061102
  Receipt Date: 20061031
  Transmission Date: 20070319
  Serious: Yes (Other)
  Sender: FDA-Public Use
  Company Number: HQWYE956231OCT06

PATIENT
  Age: 77 Year
  Sex: Male

DRUGS (1)
  1. CORDARONE [Suspect]
     Dosage: 300 MG 1X PER 1 DAY
     Dates: start: 20061005, end: 20061016

REACTIONS (3)
  - ALANINE AMINOTRANSFERASE INCREASED [None]
  - ASPARTATE AMINOTRANSFERASE INCREASED [None]
  - BLOOD BILIRUBIN INCREASED [None]
